FAERS Safety Report 6628721-0 (Version None)
Quarter: 2010Q1

REPORT INFORMATION
  Report Type: 
  Country: None (occurrence: None)
  Receive Date: 20100225
  Receipt Date: 20090618
  Transmission Date: 20100710
  Serious: Yes (Hospitalization)
  Sender: FDA-Public Use
  Company Number: US-JNJFOC-20090601993

PATIENT
  Age: 81 Year
  Sex: Female
  Weight: 78.4723 kg

DRUGS (13)
  1. IBUPROFEN TABLETS [Suspect]
     Indication: ARTHRALGIA
     Dosage: 200 MG, 1 IN 1 AS NECESSARY, ORAL
     Route: 048
     Dates: start: 19950101, end: 20090501
  2. PREDNISONE [Suspect]
  3. EXEMESTANE [Concomitant]
  4. CALCIUM (CALCIUM) [Concomitant]
  5. FOLIC ACID [Concomitant]
  6. GLUCOSAMINE (GLUCOSAMINE) [Concomitant]
  7. HYDROCHLOROTHIAZIDE [Concomitant]
  8. AMBIEN [Concomitant]
  9. LISINOPRIL [Concomitant]
  10. CLINORIL [Concomitant]
  11. BONIVA [Concomitant]
  12. ALBUTEROL [Concomitant]
  13. IPRATROPIUM BROMIDE [Concomitant]

REACTIONS (1)
  - GASTROINTESTINAL HAEMORRHAGE [None]
